FAERS Safety Report 11930048 (Version 1)
Quarter: 2016Q1

REPORT INFORMATION
  Report Type: Spontaneous
  Country: US (occurrence: US)
  Receive Date: 20160120
  Receipt Date: 20160120
  Transmission Date: 20160526
  Serious: Yes (Death)
  Sender: FDA-Public Use
  Company Number: US-APOTEX-2016AP005676

PATIENT

DRUGS (2)
  1. ALPRAZOLAM TABLETS USP [Suspect]
     Active Substance: ALPRAZOLAM
     Route: 065
  2. HYDROCODONE [Suspect]
     Active Substance: HYDROCODONE
     Route: 065

REACTIONS (1)
  - Death [Fatal]
